FAERS Safety Report 13735481 (Version 1)
Quarter: 2017Q3

REPORT INFORMATION
  Report Type: Spontaneous
  Country: US (occurrence: US)
  Receive Date: 20170709
  Receipt Date: 20170709
  Transmission Date: 20171127
  Serious: Yes (Hospitalization)
  Sender: FDA-Public Use
  Company Number: None

PATIENT
  Age: 85 Year
  Sex: Female
  Weight: 79.65 kg

DRUGS (10)
  1. OMEGA3 [Concomitant]
  2. LEVOTHYROXINE. [Concomitant]
     Active Substance: LEVOTHYROXINE
  3. ALBUTEROL. [Concomitant]
     Active Substance: ALBUTEROL
  4. ALPH LIPOIC ACID [Concomitant]
  5. VASOTEC [Concomitant]
     Active Substance: ENALAPRIL MALEATE
  6. GLIPIXIDE [Concomitant]
  7. D-3 [Concomitant]
     Active Substance: CHOLECALCIFEROL
  8. MIRALAX [Suspect]
     Active Substance: POLYETHYLENE GLYCOL 3350
     Indication: CONSTIPATION
     Dosage: ?          QUANTITY:1 17 GMS;?
     Route: 048
     Dates: start: 20170707, end: 20170707
  9. CO2_!0 [Concomitant]
  10. ASA [Concomitant]
     Active Substance: ASPIRIN

REACTIONS (4)
  - Vomiting projectile [None]
  - Vertigo [None]
  - Pancreatitis [None]
  - Nausea [None]

NARRATIVE: CASE EVENT DATE: 20170707
